FAERS Safety Report 4754297-9 (Version None)
Quarter: 2005Q3

REPORT INFORMATION
  Report Type: 
  Country: None (occurrence: None)
  Receive Date: 20050825
  Receipt Date: 20050825
  Transmission Date: 20060218
  Serious: Yes (Hospitalization)
  Sender: FDA-Public Use
  Company Number: None

PATIENT
  Age: 53 Year
  Sex: Male

DRUGS (5)
  1. CAMPATH [Suspect]
     Indication: ANAPLASTIC LARGE CELL LYMPHOMA T- AND NULL-CELL TYPES
     Dosage: Q 3 WEEKS
     Dates: start: 20050207
  2. CYTOXAN [Suspect]
     Dosage: Q 3 WEEKS
     Dates: start: 20050207
  3. PREDNISONE [Suspect]
  4. DOXORUBICIN HCL [Suspect]
  5. VINCRISTINE [Suspect]

REACTIONS (1)
  - PYREXIA [None]
